APPROVED DRUG PRODUCT: DTIC-DOME
Active Ingredient: DACARBAZINE
Strength: 200MG/VIAL **Federal Register determination that product was not discontinued or withdrawn for safety or effectiveness reasons**
Dosage Form/Route: INJECTABLE;INJECTION
Application: N017575 | Product #002
Applicant: BAYER HEALTHCARE PHARMACEUTICALS INC
Approved: Approved Prior to Jan 1, 1982 | RLD: Yes | RS: No | Type: DISCN